FAERS Safety Report 17221853 (Version 1)
Quarter: 2020Q1

REPORT INFORMATION
  Report Type: Report from Study
  Country: US (occurrence: US)
  Receive Date: 20200101
  Receipt Date: 20200101
  Transmission Date: 20200409
  Serious: Yes (Other)
  Sender: FDA-Public Use
  Company Number: US-ROCHE-2511510

PATIENT
  Sex: Female
  Weight: 74.91 kg

DRUGS (19)
  1. LOVASTATIN. [Concomitant]
     Active Substance: LOVASTATIN
     Indication: BLOOD CHOLESTEROL
     Route: 048
  2. CALCIUM [Concomitant]
     Active Substance: CALCIUM
     Route: 048
  3. GABAPENTIN. [Concomitant]
     Active Substance: GABAPENTIN
     Indication: FIBROMYALGIA
  4. MELATONIN [Concomitant]
     Active Substance: MELATONIN
     Dosage: AT BEDTIME ;ONGOING: YES
     Route: 048
  5. OCREVUS [Suspect]
     Active Substance: OCRELIZUMAB
     Indication: MULTIPLE SCLEROSIS RELAPSE
     Dosage: DATE OF PREVIOUS INFUSION:  10/DEC/2018, 10/JUN/2018, 19/DEC/2019?ONGOING: YES
     Route: 065
     Dates: start: 20181126
  6. GABAPENTIN. [Concomitant]
     Active Substance: GABAPENTIN
     Indication: NEURALGIA
     Route: 048
     Dates: start: 1995
  7. PAROXETINE. [Concomitant]
     Active Substance: PAROXETINE
     Indication: ANXIETY
  8. CELECOXIB. [Concomitant]
     Active Substance: CELECOXIB
     Indication: ARTHRITIS
     Route: 065
     Dates: start: 2014
  9. WARFARIN [Concomitant]
     Active Substance: WARFARIN
     Dosage: DOSE DEPENDS ON WEEKLY HOME INR TEST RESULTS ;ONGOING: YES
     Route: 048
  10. VITAMIN D3 [Concomitant]
     Active Substance: CHOLECALCIFEROL
     Indication: VITAMIN D DEFICIENCY
     Route: 048
  11. KLONOPIN [Suspect]
     Active Substance: CLONAZEPAM
     Indication: RESTLESS LEGS SYNDROME
     Dosage: AT BEDTIME ;ONGOING: NO
     Route: 048
     Dates: start: 19990101
  12. PAROXETINE. [Concomitant]
     Active Substance: PAROXETINE
     Indication: DEPRESSION
     Route: 048
     Dates: start: 1997
  13. WARFARIN [Concomitant]
     Active Substance: WARFARIN
     Indication: DEEP VEIN THROMBOSIS
     Dosage: DOSE DEPENDS ON WEEKLY HOME INR TEST RESULTS ;ONGOING: YES
     Route: 048
  14. GABAPENTIN. [Concomitant]
     Active Substance: GABAPENTIN
     Indication: ARTHRITIS
  15. BIOTIN [Concomitant]
     Active Substance: BIOTIN
     Route: 048
  16. KLONOPIN [Suspect]
     Active Substance: CLONAZEPAM
     Indication: RESTLESSNESS
     Dosage: AT BEDTIME ;ONGOING: YES
     Route: 048
  17. QUINAPRIL. [Concomitant]
     Active Substance: QUINAPRIL
     Indication: HYPERTENSION
     Route: 048
  18. OMEPRAZOLE. [Concomitant]
     Active Substance: OMEPRAZOLE
     Indication: DYSPEPSIA
     Dosage: EVERY MORNING ;ONGOING: YES
     Route: 048
  19. DOCUSATE SODIUM. [Concomitant]
     Active Substance: DOCUSATE SODIUM
     Indication: CONSTIPATION
     Route: 048

REACTIONS (5)
  - Fibromyalgia [Not Recovered/Not Resolved]
  - Pyrexia [Not Recovered/Not Resolved]
  - Urinary tract infection [Recovered/Resolved]
  - Memory impairment [Not Recovered/Not Resolved]
  - Body height decreased [Not Recovered/Not Resolved]

NARRATIVE: CASE EVENT DATE: 2000
